FAERS Safety Report 7531551-9 (Version None)
Quarter: 2011Q2

REPORT INFORMATION
  Report Type: 
  Country: None (occurrence: None)
  Receive Date: 20110601
  Receipt Date: 20110517
  Transmission Date: 20111010
  Serious: Yes (Death)
  Sender: FDA-Public Use
  Company Number: 2010004231

PATIENT
  Age: 65 Year
  Sex: Male

DRUGS (7)
  1. OMEPRAZOLE [Concomitant]
  2. MEGESTROL ACETATE [Concomitant]
  3. DOCETAXEL [Suspect]
     Indication: NON-SMALL CELL LUNG CANCER
     Dosage: 140 MG, /D, ORAL
     Route: 048
     Dates: start: 20100621, end: 20100823
  4. PRIMPERAN TAB [Concomitant]
  5. ERLOTINIB HYDROCHLORIDE [Suspect]
     Indication: NON-SMALL CELL LUNG CANCER
     Dosage: 150 MG, /D, ORAL
     Route: 048
     Dates: start: 20100913, end: 20100917
  6. MOTENS (LACIDIPINE) [Concomitant]
  7. NOCTAMID (LORMETAZEPAM) [Concomitant]

REACTIONS (1)
  - HAEMOPTYSIS [None]
